FAERS Safety Report 7843417-5 (Version None)
Quarter: 2011Q4

REPORT INFORMATION
  Report Type: 
  Country: None (occurrence: None)
  Receive Date: 20111025
  Receipt Date: 20111019
  Transmission Date: 20120403
  Serious: Yes (Hospitalization)
  Sender: FDA-Public Use
  Company Number: ZA-ROCHE-730001

PATIENT
  Sex: Male
  Weight: 158.5 kg

DRUGS (12)
  1. AVASTIN [Suspect]
     Indication: RENAL CANCER METASTATIC
     Route: 042
     Dates: start: 20090527, end: 20100915
  2. INTERFERON ALFA [Suspect]
     Indication: RENAL CANCER METASTATIC
     Dosage: DOSE: 9 MIU, FREQUENCY: 3 X WEEKLY
     Route: 058
     Dates: start: 20090527, end: 20101004
  3. SPIRONOLACTONE [Concomitant]
     Indication: HYPERTENSION
  4. AMINOACIDS [Concomitant]
  5. TORSEMIDE [Concomitant]
     Indication: HYPERTENSION
  6. CHELA-FER [Concomitant]
     Indication: ANAEMIA
  7. PLENISH-K [Concomitant]
  8. OMEPRAZOLE [Concomitant]
     Indication: GASTRITIS
  9. GLUCOPHAGE [Concomitant]
     Indication: DIABETES MELLITUS
  10. MINERAL TAB [Concomitant]
  11. VITAMIN TAB [Concomitant]
  12. URBANOL [Concomitant]
     Indication: ANXIETY

REACTIONS (1)
  - ASCITES [None]
